FAERS Safety Report 25611212 (Version 1)
Quarter: 2025Q3

REPORT INFORMATION
  Report Type: Spontaneous
  Country: EU (occurrence: EU)
  Receive Date: 20250728
  Receipt Date: 20250728
  Transmission Date: 20251020
  Serious: Yes (Death)
  Sender: JUBILANT
  Company Number: EU-JUBILANT CADISTA PHARMACEUTICALS-2025JUB00086

PATIENT
  Age: 53 Year
  Sex: Male

DRUGS (3)
  1. METHYLPREDNISOLONE [Suspect]
     Active Substance: METHYLPREDNISOLONE
  2. SIBUTRAMINE [Suspect]
     Active Substance: SIBUTRAMINE
  3. METHANDROSTENOLONE [Suspect]
     Active Substance: METHANDROSTENOLONE

REACTIONS (2)
  - Drug abuse [Fatal]
  - Arteriovenous malformation [Fatal]
